FAERS Safety Report 6029799-8 (Version None)
Quarter: 2009Q1

REPORT INFORMATION
  Report Type: 
  Country: None (occurrence: None)
  Receive Date: 20090106
  Receipt Date: 20090106
  Transmission Date: 20090719
  Serious: Yes (Death)
  Sender: FDA-Public Use
  Company Number: None

PATIENT
  Sex: Male

DRUGS (2)
  1. HUMIRA [Suspect]
     Indication: RHEUMATOID ARTHRITIS
     Dosage: 40 MG QWK 40 MG SQ
     Route: 058
     Dates: start: 20060101, end: 20070101
  2. ENBREL [Suspect]
     Dosage: 50 MG QWK SQ
     Route: 058
     Dates: start: 20020101, end: 20060101

REACTIONS (1)
  - AMYOTROPHIC LATERAL SCLEROSIS [None]
